FAERS Safety Report 19854455 (Version 1)
Quarter: 2021Q3

REPORT INFORMATION
  Report Type: Spontaneous
  Country: US (occurrence: US)
  Receive Date: 20210920
  Receipt Date: 20210920
  Transmission Date: 20211014
  Serious: No
  Sender: FDA-Public Use
  Company Number: US-BAUSCH-BL-2021-028010

PATIENT
  Age: 64 Year
  Sex: Female

DRUGS (2)
  1. SODIUM SULFACETAMIDE [Suspect]
     Active Substance: SULFACETAMIDE SODIUM
     Indication: ACNE
     Route: 065
  2. SODIUM SULFACETAMIDE [Suspect]
     Active Substance: SULFACETAMIDE SODIUM
     Indication: ROSACEA

REACTIONS (2)
  - Drug ineffective [Unknown]
  - Product substitution issue [Unknown]
